FAERS Safety Report 4785935-2 (Version None)
Quarter: 2005Q4

REPORT INFORMATION
  Report Type: 
  Country: None (occurrence: None)
  Receive Date: 20051003
  Receipt Date: 20050928
  Transmission Date: 20060501
  Serious: Yes (Hospitalization)
  Sender: FDA-Public Use
  Company Number: FR-SANOFI-SYNTHELABO-F01200502010

PATIENT
  Sex: Female

DRUGS (4)
  1. OXALIPLATIN [Suspect]
     Route: 042
     Dates: start: 20040923, end: 20040923
  2. FLUOROURACIL [Suspect]
     Dosage: 250 MG/M2/DAY, 7 DAYS A WEEK FOR 5 WEEK
     Route: 042
     Dates: start: 20040916, end: 20040923
  3. RADIOTHERAPY [Suspect]
     Dosage: 55 GREY OVER 5 WEEKS
     Dates: start: 20040916, end: 20040923
  4. ALDACTONE [Concomitant]

REACTIONS (5)
  - HYPOTENSION [None]
  - JAUNDICE [None]
  - LUNG DISORDER [None]
  - NEUTROPENIA [None]
  - PYREXIA [None]
